FAERS Safety Report 4953863-5 (Version None)
Quarter: 2006Q1

REPORT INFORMATION
  Report Type: 
  Country: None (occurrence: None)
  Receive Date: 20060327
  Receipt Date: 20060313
  Transmission Date: 20060701
  Serious: Yes (Hospitalization)
  Sender: FDA-Public Use
  Company Number: 2006PK00549

PATIENT
  Age: 24678 Day
  Sex: Male

DRUGS (2)
  1. ZD2171 [Suspect]
     Indication: COLORECTAL CANCER METASTATIC
     Route: 048
  2. MFOLFOX6 [Suspect]
     Indication: COLORECTAL CANCER METASTATIC

REACTIONS (1)
  - VENA CAVA THROMBOSIS [None]
